FAERS Safety Report 5353831-8 (Version None)
Quarter: 2007Q2

REPORT INFORMATION
  Report Type: 
  Country: None (occurrence: None)
  Receive Date: 20070608
  Receipt Date: 20070525
  Transmission Date: 20071010
  Serious: Yes (Hospitalization)
  Sender: FDA-Public Use
  Company Number: S07-USA-02269-01

PATIENT
  Age: 21 Year
  Sex: Female

DRUGS (7)
  1. LEXAPRO [Suspect]
     Indication: ANXIETY
     Dosage: 10 MG QD PO
     Route: 048
  2. LEXAPRO [Suspect]
     Indication: DEPRESSION
     Dosage: 10 MG QD PO
     Route: 048
  3. METADATE CD [Suspect]
     Indication: ATTENTION DEFICIT/HYPERACTIVITY DISORDER
     Dates: start: 20061001, end: 20070520
  4. RITALIN [Suspect]
     Indication: ATTENTION DEFICIT/HYPERACTIVITY DISORDER
     Dosage: 5 MG TID
     Dates: start: 20061001, end: 20070520
  5. RISPERDAL [Concomitant]
  6. MELATONIN [Concomitant]
  7. ROZAREM (RAMELTEON) [Concomitant]

REACTIONS (14)
  - ANOXIC ENCEPHALOPATHY [None]
  - BRADYCARDIA [None]
  - CARDIAC ARREST [None]
  - EJECTION FRACTION DECREASED [None]
  - LEFT VENTRICULAR DYSFUNCTION [None]
  - LOSS OF CONSCIOUSNESS [None]
  - MALAISE [None]
  - OEDEMA [None]
  - PALPITATIONS [None]
  - PERICARDIAL EFFUSION [None]
  - RIGHT VENTRICULAR DYSFUNCTION [None]
  - SINUS TACHYCARDIA [None]
  - TACHYCARDIA [None]
  - TONGUE BITING [None]
